FAERS Safety Report 6706163-7 (Version None)
Quarter: 2010Q2

REPORT INFORMATION
  Report Type: 
  Country: None (occurrence: None)
  Receive Date: 20100503
  Receipt Date: 20100423
  Transmission Date: 20101027
  Serious: Yes (Hospitalization)
  Sender: FDA-Public Use
  Company Number: US-SANOFI-AVENTIS-2010SA011785

PATIENT
  Age: 63 Year
  Sex: Male
  Weight: 108.86 kg

DRUGS (7)
  1. LANTUS [Suspect]
     Indication: TYPE 2 DIABETES MELLITUS
     Dosage: DOSE:55 UNIT(S)
     Route: 058
     Dates: start: 20100201
  2. LANTUS [Suspect]
     Dosage: DOSE:70 UNIT(S)
     Route: 058
     Dates: end: 20100201
  3. OPTICLICK [Suspect]
     Indication: TYPE 2 DIABETES MELLITUS
     Dates: start: 20050101
  4. LIPITOR [Concomitant]
  5. HUMALOG [Concomitant]
     Dosage: DOSE:7 UNIT(S)
  6. FOLTX [Concomitant]
  7. FOLTRIN [Concomitant]
     Dosage: 1 CAPSULE

REACTIONS (2)
  - CEREBROVASCULAR ACCIDENT [None]
  - FALL [None]
